FAERS Safety Report 17893577 (Version 1)
Quarter: 2020Q2

REPORT INFORMATION
  Report Type: Spontaneous
  Country: ES (occurrence: ES)
  Receive Date: 20200615
  Receipt Date: 20200615
  Transmission Date: 20200714
  Serious: Yes (Death)
  Sender: FDA-Public Use
  Company Number: ES-CADILA HEALTHCARE LIMITED-ES-ZYDUS-027717

PATIENT

DRUGS (14)
  1. SOLIFENACIN [Concomitant]
     Active Substance: SOLIFENACIN
     Indication: URINARY INCONTINENCE
  2. SINEMET [Suspect]
     Active Substance: CARBIDOPA\LEVODOPA
     Indication: PARKINSON^S DISEASE
     Dosage: 200/50 MG,(INTERVAL :24 HOURS)
     Route: 048
     Dates: start: 20100915, end: 20180129
  3. ATORVASTATINA [Concomitant]
     Active Substance: ATORVASTATIN
     Indication: ARTERIOSCLEROSIS
     Dosage: 40 MILLIGRAM,(INTERVAL :24 HOURS)
     Dates: start: 2014
  4. ENALAPRIL [Concomitant]
     Active Substance: ENALAPRIL
  5. CLONAZEPAM. [Concomitant]
     Active Substance: CLONAZEPAM
     Dates: start: 2016
  6. PROMETAX [Concomitant]
     Active Substance: RIVASTIGMINE
     Dates: start: 201511
  7. SERETIDE [Concomitant]
     Active Substance: FLUTICASONE PROPIONATE\SALMETEROL XINAFOATE
     Dates: start: 2010
  8. QUETIAPINA [Concomitant]
     Active Substance: QUETIAPINE
     Dates: start: 2015
  9. LEVOFLOXACIN. [Suspect]
     Active Substance: LEVOFLOXACIN
     Indication: PNEUMONIA
     Dosage: 500 MILLIGRAM,(INTERVAL :24 HOURS)
     Route: 048
     Dates: start: 20180129, end: 20180205
  10. CITALOPRAM [Concomitant]
     Active Substance: CITALOPRAM HYDROBROMIDE
     Dates: start: 201111
  11. CHOLECALCIFEROL [Concomitant]
     Active Substance: CHOLECALCIFEROL
     Dates: start: 2016
  12. CLOPIDOGREL [Concomitant]
     Active Substance: CLOPIDOGREL BISULFATE
     Dates: start: 2014
  13. PANTOPRAZOLE [Concomitant]
     Active Substance: PANTOPRAZOLE
     Dates: start: 2015
  14. SINEMET [Suspect]
     Active Substance: CARBIDOPA\LEVODOPA
     Indication: PARKINSON^S DISEASE
     Dosage: 250/50 MG,(INTERVAL :6 HOURS)
     Route: 048
     Dates: start: 20111126, end: 20180129

REACTIONS (6)
  - Pseudomembranous colitis [Fatal]
  - Diarrhoea [Fatal]
  - Anuria [Fatal]
  - Abdominal pain [Fatal]
  - Dyskinesia [Fatal]
  - Hypotension [Fatal]

NARRATIVE: CASE EVENT DATE: 20180124
